FAERS Safety Report 12704080 (Version 2)
Quarter: 2016Q3

REPORT INFORMATION
  Report Type: Spontaneous
  Country: US (occurrence: US)
  Receive Date: 20160831
  Receipt Date: 20160905
  Transmission Date: 20161109
  Serious: Yes (Other)
  Sender: FDA-Public Use
  Company Number: US-JNJFOC-20160822833

PATIENT
  Age: 41 Year
  Sex: Female
  Weight: 95.26 kg

DRUGS (2)
  1. FERROUS SULFATE. [Concomitant]
     Active Substance: FERROUS SULFATE
     Route: 065
  2. XARELTO [Suspect]
     Active Substance: RIVAROXABAN
     Indication: DEEP VEIN THROMBOSIS
     Route: 048
     Dates: start: 20160427, end: 20160822

REACTIONS (3)
  - Haemolytic anaemia [Not Recovered/Not Resolved]
  - Blood urine present [Unknown]
  - Methaemoglobinaemia [Not Recovered/Not Resolved]

NARRATIVE: CASE EVENT DATE: 20160819
